FAERS Safety Report 10153041 (Version 1)
Quarter: 2014Q2

REPORT INFORMATION
  Report Type: Spontaneous
  Country: US (occurrence: US)
  Receive Date: 20140505
  Receipt Date: 20140505
  Transmission Date: 20141212
  Serious: No
  Sender: FDA-Public Use
  Company Number: US-009507513-1405USA000443

PATIENT
  Age: 30 Year
  Sex: Female
  Weight: 94.33 kg

DRUGS (1)
  1. NEXPLANON [Suspect]
     Dosage: UNK
     Route: 059
     Dates: start: 20140409, end: 20140421

REACTIONS (6)
  - Implant site erythema [Recovering/Resolving]
  - Implant site pruritus [Recovering/Resolving]
  - Implant site swelling [Recovering/Resolving]
  - Implant site oedema [Recovering/Resolving]
  - Device difficult to use [Recovered/Resolved]
  - Complication of device removal [Recovered/Resolved]
